FAERS Safety Report 13549956 (Version 2)
Quarter: 2017Q3

REPORT INFORMATION
  Report Type: Spontaneous
  Country: US (occurrence: US)
  Receive Date: 20170516
  Receipt Date: 20170706
  Transmission Date: 20171127
  Serious: Yes (Other)
  Sender: FDA-Public Use
  Company Number: US-WEST-WARD PHARMACEUTICALS CORP.-US-H14001-17-01427

PATIENT
  Sex: Male

DRUGS (3)
  1. SABRIL [Suspect]
     Active Substance: VIGABATRIN
     Indication: SEIZURE
     Route: 065
  2. PREDNISONE. [Suspect]
     Active Substance: PREDNISONE
     Route: 048
     Dates: end: 201703
  3. PREDNISONE. [Suspect]
     Active Substance: PREDNISONE
     Indication: INFANTILE SPASMS
     Route: 048
     Dates: start: 20170315

REACTIONS (2)
  - Seizure [Recovered/Resolved]
  - Off label use [Recovered/Resolved]
